FAERS Safety Report 8868819 (Version 1)
Quarter: 2012Q4

REPORT INFORMATION
  Report Type: 
  Country: US (occurrence: US)
  Receive Date: 20121024
  Receipt Date: 20121024
  Transmission Date: 20130627
  Serious: Yes (Hospitalization)
  Sender: FDA-Public Use
  Company Number: US-TEVA-366307USA

PATIENT
  Age: 59 None
  Sex: Female
  Weight: 68.1 kg

DRUGS (10)
  1. NUVIGIL [Suspect]
     Indication: SLEEP DISORDER
     Dosage: 125 Milligram Daily; Q AM
     Route: 048
     Dates: start: 20120908, end: 20120911
  2. ABILIFY [Concomitant]
     Indication: DEPRESSION
     Dosage: 5 Milligram Daily;
     Route: 048
     Dates: start: 201208, end: 20120926
  3. WELLBUTRIN [Concomitant]
     Indication: DEPRESSION
     Dates: start: 201208, end: 20120926
  4. PROZAC [Concomitant]
     Indication: POST-TRAUMATIC STRESS DISORDER
     Route: 048
     Dates: end: 20120926
  5. PROZAC [Concomitant]
     Indication: POST-TRAUMATIC STRESS DISORDER
     Dates: start: 20120927, end: 20121001
  6. VIT B6 [Concomitant]
     Indication: VITAMIN SUPPLEMENTATION
  7. VIT B12 [Concomitant]
     Indication: VITAMIN SUPPLEMENTATION
     Dosage: 142.8571 Microgram Daily;
  8. VIT D [Concomitant]
     Indication: VITAMIN SUPPLEMENTATION
     Route: 048
  9. ZINC [Concomitant]
     Indication: VITAMIN SUPPLEMENTATION
     Route: 048
  10. PANTOPRAZOLE [Concomitant]
     Indication: CROHN^S DISEASE
     Dosage: 40 Milligram Daily;
     Route: 048

REACTIONS (7)
  - Respiratory arrest [Unknown]
  - Hypersensitivity [Unknown]
  - Erythema [Recovered/Resolved]
  - Urticaria [Recovered/Resolved]
  - Dysphagia [Unknown]
  - Dyspnoea [Unknown]
  - Off label use [Unknown]
